FAERS Safety Report 5145175-4 (Version None)
Quarter: 2006Q4

REPORT INFORMATION
  Report Type: 
  Country: None (occurrence: None)
  Receive Date: 20061107
  Receipt Date: 20060927
  Transmission Date: 20070319
  Serious: Yes (Hospitalization, Other)
  Sender: FDA-Public Use
  Company Number: US-ELI_LILLY_AND_COMPANY-US200609007082

PATIENT
  Age: 81 Year
  Sex: Female

DRUGS (8)
  1. FORTEO [Suspect]
     Indication: OSTEOPOROSIS
     Dosage: 3 ML, UNK
     Dates: start: 20060923, end: 20060923
  2. FORTEO [Suspect]
     Dosage: UNK, UNK
     Dates: start: 20051201
  3. NORVASC [Concomitant]
     Dosage: 5 MG, DAILY (1/D)
  4. DIOVAN [Concomitant]
     Dosage: 160 MG, DAILY (1/D)
  5. FOLIC ACID [Concomitant]
     Dosage: 1 MG, UNK
  6. XANAX                                   /USA/ [Concomitant]
     Dosage: 0.5 MG, AS NEEDED
  7. CALCIUM CARBONATE [Concomitant]
     Dosage: 600 MG, DAILY (1/D)
  8. LOVENOX [Concomitant]
     Dosage: 30 MG, DAILY (1/D)
     Route: 058

REACTIONS (15)
  - ACCIDENTAL OVERDOSE [None]
  - ARTHRITIS [None]
  - ASTHENIA [None]
  - CONFUSIONAL STATE [None]
  - DEHYDRATION [None]
  - DISORIENTATION [None]
  - HYPERHIDROSIS [None]
  - HYPONATRAEMIA [None]
  - HYPOTENSION [None]
  - INCORRECT DOSE ADMINISTERED [None]
  - INJECTION SITE BRUISING [None]
  - INJECTION SITE PAIN [None]
  - LETHARGY [None]
  - MEDICATION ERROR [None]
  - WRONG TECHNIQUE IN DRUG USAGE PROCESS [None]
